FAERS Safety Report 18927727 (Version 1)
Quarter: 2021Q1

REPORT INFORMATION
  Report Type: Spontaneous
  Country: US (occurrence: US)
  Receive Date: 20210222
  Receipt Date: 20210222
  Transmission Date: 20210420
  Serious: Yes (Hospitalization, Other)
  Sender: FDA-Public Use
  Company Number: None

PATIENT
  Age: 52 Year
  Sex: Female
  Weight: 128 kg

DRUGS (1)
  1. MEPOLIZUMAB (MEPOLIZUMAB 100MG/ML AUTOINJECTOR) [Suspect]
     Active Substance: MEPOLIZUMAB
     Indication: ASTHMA
     Dosage: ?          OTHER DOSE:100 MCG;OTHER FREQUENCY:N/A;?
     Route: 058
     Dates: start: 20200715, end: 20201105

REACTIONS (7)
  - Angina pectoris [None]
  - Anaphylactic reaction [None]
  - Angioedema [None]
  - Respiratory depression [None]
  - Chest discomfort [None]
  - Urticaria [None]
  - Dyspnoea [None]

NARRATIVE: CASE EVENT DATE: 20201102
